FAERS Safety Report 12504146 (Version 1)
Quarter: 2016Q2

REPORT INFORMATION
  Report Type: Spontaneous
  Country: US (occurrence: US)
  Receive Date: 20160628
  Receipt Date: 20160628
  Transmission Date: 20160815
  Serious: Yes (Life-Threatening, Hospitalization)
  Sender: FDA-Public Use
  Company Number: US-PFIZER INC-2016313888

PATIENT
  Age: 59 Year
  Sex: Male
  Weight: 86.18 kg

DRUGS (2)
  1. VFEND [Suspect]
     Active Substance: VORICONAZOLE
     Indication: LOWER RESPIRATORY TRACT INFECTION BACTERIAL
     Dosage: 250MG TABLET EVERY 12 HOURS
     Dates: start: 201506
  2. CELLCEPT [Concomitant]
     Active Substance: MYCOPHENOLATE MOFETIL\MYCOPHENOLATE MOFETIL HYDROCHLORIDE
     Indication: GRAFT VERSUS HOST DISEASE
     Dosage: 500MG TABLET, TWO IN THE MORNING AND TWO IN THE EVENING
     Dates: start: 2009

REACTIONS (4)
  - Bacterial sepsis [Recovering/Resolving]
  - Malaise [Unknown]
  - Dehydration [Recovered/Resolved]
  - Product use issue [Unknown]
